FAERS Safety Report 8935669 (Version 1)
Quarter: 2012Q4

REPORT INFORMATION
  Report Type: 
  Country: US (occurrence: US)
  Receive Date: 20121130
  Receipt Date: 20121130
  Transmission Date: 20130627
  Serious: Yes (Other)
  Sender: FDA-Public Use
  Company Number: US-PFIZER INC-2012299304

PATIENT
  Age: 4 None
  Sex: Female

DRUGS (2)
  1. EFFEXOR XR [Suspect]
     Indication: SOCIAL ANXIETY DISORDER
     Dosage: 150 mg, daily
     Route: 048
     Dates: end: 2010
  2. EFFEXOR XR [Suspect]
     Indication: DEPRESSION

REACTIONS (2)
  - Abortion spontaneous [Unknown]
  - Uterine disorder [Unknown]
